FAERS Safety Report 6423321-X (Version None)
Quarter: 2009Q4

REPORT INFORMATION
  Report Type: 
  Country: None (occurrence: None)
  Receive Date: 20091102
  Receipt Date: 20091024
  Transmission Date: 20100525
  Serious: Yes (Hospitalization)
  Sender: FDA-Public Use
  Company Number: TR-ELI_LILLY_AND_COMPANY-TR200910006097

PATIENT

DRUGS (5)
  1. HUMULIN N [Suspect]
     Indication: GESTATIONAL DIABETES
     Dosage: 16 U, DAILY (1/D)
     Route: 064
     Dates: start: 20090101, end: 20091016
  2. HUMULIN R [Suspect]
     Indication: GESTATIONAL DIABETES
     Dosage: UNK UNK, 3/D
     Route: 064
     Dates: start: 20090101, end: 20091016
  3. HUMULIN R [Suspect]
     Dosage: 16 U, NOON
     Route: 064
     Dates: start: 20090101, end: 20091016
  4. HUMULIN R [Suspect]
     Dosage: 18 U, EACH EVENING
     Route: 064
     Dates: start: 20090101, end: 20091016
  5. BLOOD COAGULATION FACTORS [Concomitant]
     Route: 064
     Dates: start: 20090101, end: 20091016

REACTIONS (2)
  - DRUG EXPOSURE DURING PREGNANCY [None]
  - PREMATURE BABY [None]
